FAERS Safety Report 8212335-5 (Version None)
Quarter: 2012Q1

REPORT INFORMATION
  Report Type: 
  Country: None (occurrence: None)
  Receive Date: 20120315
  Receipt Date: 20120314
  Transmission Date: 20120608
  Serious: Yes (Death)
  Sender: FDA-Public Use
  Company Number: JP-B.I. PHARMACEUTICALS,INC./RIDGEFIELD-2012-BP-04905NB

PATIENT
  Sex: Male
  Weight: 59.8 kg

DRUGS (8)
  1. FOSAMAX [Suspect]
     Dosage: 5 MG
     Route: 048
  2. PROGRAF [Suspect]
     Indication: RHEUMATOID ARTHRITIS
     Dosage: 1.5 MG
     Route: 048
     Dates: start: 20110530, end: 20110725
  3. MICARDIS [Suspect]
     Dosage: 40 MG
     Route: 048
  4. COTRIM [Suspect]
     Dosage: 1DF
     Route: 048
  5. OLOPATADINE HCL [Suspect]
     Dosage: 5 MG
     Route: 048
  6. VOLTAREN [Suspect]
     Dosage: 75 MG
     Route: 048
  7. PREDNISOLONE [Suspect]
     Indication: RHEUMATOID ARTHRITIS
     Dosage: 10 MG
     Route: 048
     Dates: start: 20080101, end: 20110901
  8. LANSOPRAZOLE [Suspect]
     Dosage: 15 MG
     Route: 048

REACTIONS (6)
  - PLATELET COUNT DECREASED [None]
  - RENAL IMPAIRMENT [None]
  - HAEMOGLOBIN DECREASED [None]
  - BLOOD ALKALINE PHOSPHATASE INCREASED [None]
  - GAMMA-GLUTAMYLTRANSFERASE INCREASED [None]
  - INTERSTITIAL LUNG DISEASE [None]
